FAERS Safety Report 8581017-2 (Version None)
Quarter: 2012Q3

REPORT INFORMATION
  Report Type: 
  Country: None (occurrence: None)
  Receive Date: 20120809
  Receipt Date: 20120807
  Transmission Date: 20120928
  Serious: No
  Sender: FDA-Public Use
  Company Number: US-PFIZER INC-2012193356

PATIENT
  Age: 54 Year
  Sex: Male
  Weight: 118 kg

DRUGS (4)
  1. NEURONTIN [Concomitant]
     Indication: BACK PAIN
     Dosage: 3600 MG, PER DAY
  2. CHANTIX [Suspect]
     Indication: SMOKING CESSATION THERAPY
     Dosage: 0.5 MG, DAILY
     Route: 048
     Dates: start: 20120701, end: 20120101
  3. NEURONTIN [Concomitant]
     Indication: PAIN
  4. CHANTIX [Suspect]
     Dosage: UNK
     Route: 048
     Dates: start: 20120101

REACTIONS (3)
  - NERVOUSNESS [None]
  - STRESS [None]
  - ANXIETY [None]
